FAERS Safety Report 15006442 (Version 2)
Quarter: 2018Q3

REPORT INFORMATION
  Report Type: Report from Study
  Country: US (occurrence: US)
  Receive Date: 20180613
  Receipt Date: 20180705
  Transmission Date: 20181010
  Serious: Yes (Hospitalization)
  Sender: FDA-Public Use
  Company Number: US-JNJFOC-20180613418

PATIENT
  Age: 16 Year
  Sex: Female
  Weight: 51.3 kg

DRUGS (2)
  1. ENTYVIO [Concomitant]
     Active Substance: VEDOLIZUMAB
     Route: 065
     Dates: start: 20160904
  2. REMICADE [Suspect]
     Active Substance: INFLIXIMAB
     Indication: INFLAMMATORY BOWEL DISEASE
     Route: 042
     Dates: start: 20110516

REACTIONS (1)
  - Pneumonia [Recovered/Resolved]

NARRATIVE: CASE EVENT DATE: 20170605
